FAERS Safety Report 24002621 (Version 3)
Quarter: 2024Q3

REPORT INFORMATION
  Report Type: Report from Study
  Country: US (occurrence: US)
  Receive Date: 20240623
  Receipt Date: 20240702
  Transmission Date: 20241017
  Serious: Yes (Hospitalization)
  Sender: ABBVIE
  Company Number: US-ABBVIE-5810322

PATIENT
  Sex: Female
  Weight: 46.266 kg

DRUGS (2)
  1. CREON [Suspect]
     Active Substance: PANCRELIPASE AMYLASE\PANCRELIPASE LIPASE\PANCRELIPASE PROTEASE
     Indication: Pancreatic failure
     Dosage: FORM STRENGTH: 36000 UNITS?FREQUENCY TEXT: 2 CAPS W/ MEALS AND 1 CAP W/SNACKS
     Route: 048
     Dates: start: 20240420, end: 20240623
  2. LIPITOR [Concomitant]
     Active Substance: ATORVASTATIN CALCIUM
     Indication: Hyperlipidaemia

REACTIONS (7)
  - Bronchitis [Recovering/Resolving]
  - Hypotension [Recovered/Resolved]
  - Drug ineffective [Not Recovered/Not Resolved]
  - Diarrhoea [Not Recovered/Not Resolved]
  - Contusion [Not Recovered/Not Resolved]
  - Chest discomfort [Recovered/Resolved]
  - Skin laceration [Recovered/Resolved]

NARRATIVE: CASE EVENT DATE: 20240101
